FAERS Safety Report 9966540 (Version 1)
Quarter: 2014Q1

REPORT INFORMATION
  Report Type: Report from Study
  Country: US (occurrence: US)
  Receive Date: 20140305
  Receipt Date: 20140305
  Transmission Date: 20141002
  Serious: No
  Sender: FDA-Public Use
  Company Number: US-ABBVIE-13P-163-1121060-00

PATIENT
  Age: 70 Year
  Sex: Female
  Weight: 64.92 kg

DRUGS (12)
  1. HUMIRA [Suspect]
     Indication: PSORIATIC ARTHROPATHY
     Route: 058
     Dates: start: 2006
  2. CLOBETASOL [Concomitant]
     Indication: PSORIASIS
  3. PROVENTIL [Concomitant]
     Indication: ASTHMA
  4. ACIPHEX [Concomitant]
     Indication: GASTROOESOPHAGEAL REFLUX DISEASE
  5. ATACAND [Concomitant]
     Indication: HYPERTENSION
  6. LORAZEPAM [Concomitant]
     Indication: ANXIETY
  7. CARBAMAZEPINE [Concomitant]
     Indication: POST-TRAUMATIC STRESS DISORDER
  8. LEVOTHYROXINE [Concomitant]
     Indication: HYPOTHYROIDISM
  9. AMLODIPINE [Concomitant]
     Indication: HYPERTENSION
  10. ASPIRIN [Concomitant]
     Indication: PRODUCT USED FOR UNKNOWN INDICATION
  11. ATORVASTATIN [Concomitant]
     Indication: BLOOD CHOLESTEROL INCREASED
  12. CLONIDINE [Concomitant]
     Indication: HYPERTENSION
     Dosage: AT BEDTIME

REACTIONS (8)
  - Weight bearing difficulty [Not Recovered/Not Resolved]
  - Fall [Recovering/Resolving]
  - Contusion [Recovering/Resolving]
  - Contusion [Not Recovered/Not Resolved]
  - Fibula fracture [Not Recovered/Not Resolved]
  - Arthralgia [Not Recovered/Not Resolved]
  - Contusion [Not Recovered/Not Resolved]
  - Neck pain [Recovering/Resolving]
